FAERS Safety Report 14237281 (Version 3)
Quarter: 2018Q1

REPORT INFORMATION
  Report Type: Spontaneous
  Country: US (occurrence: US)
  Receive Date: 20171129
  Receipt Date: 20180115
  Transmission Date: 20180508
  Serious: Yes (Hospitalization)
  Sender: FDA-Public Use
  Company Number: US-ALLERGAN-1767327US

PATIENT
  Age: 59 Year
  Sex: Male

DRUGS (5)
  1. DALVANCE [Suspect]
     Active Substance: DALBAVANCIN
     Dosage: 1500 MG, SINGLE
     Route: 042
     Dates: start: 20171110, end: 20171110
  2. TRAMADOL. [Concomitant]
     Active Substance: TRAMADOL
     Indication: PRODUCT USED FOR UNKNOWN INDICATION
     Route: 065
  3. DALVANCE [Suspect]
     Active Substance: DALBAVANCIN
     Indication: FURUNCLE
     Dosage: 1500 MG, SINGLE
     Route: 042
     Dates: start: 201710, end: 201710
  4. ROSUVASTATIN. [Concomitant]
     Active Substance: ROSUVASTATIN
     Indication: PRODUCT USED FOR UNKNOWN INDICATION
     Route: 065
  5. ACETAMINOPHEN AND CODEINE [Concomitant]
     Active Substance: ACETAMINOPHEN\CODEINE PHOSPHATE
     Indication: PRODUCT USED FOR UNKNOWN INDICATION
     Route: 065

REACTIONS (1)
  - Rhabdomyolysis [Recovered/Resolved]

NARRATIVE: CASE EVENT DATE: 20171120
